FAERS Safety Report 10539236 (Version 1)
Quarter: 2014Q4

REPORT INFORMATION
  Report Type: Spontaneous
  Country: DE (occurrence: DE)
  Receive Date: 20141023
  Receipt Date: 20141023
  Transmission Date: 20150529
  Serious: Yes (Hospitalization)
  Sender: FDA-Public Use
  Company Number: DE-ALLERGAN-1422079US

PATIENT
  Age: 89 Year
  Sex: Female

DRUGS (2)
  1. GANFORT [Suspect]
     Active Substance: BIMATOPROST\TIMOLOL
     Indication: GLAUCOMA
     Dosage: INSTILL IN BOTH EYES AS DIRECTED
     Route: 047
     Dates: start: 2009, end: 201405
  2. GANFORT [Suspect]
     Active Substance: BIMATOPROST\TIMOLOL
     Indication: GLAUCOMA
     Dosage: INSTILL IN BOTH EYES AS DIRECTED
     Route: 047
     Dates: start: 201405, end: 201408

REACTIONS (1)
  - Ulcerative keratitis [Recovered/Resolved with Sequelae]

NARRATIVE: CASE EVENT DATE: 201304
